FAERS Safety Report 9214135 (Version 2)
Quarter: 2013Q2

REPORT INFORMATION
  Report Type: Spontaneous
  Country: US (occurrence: US)
  Receive Date: 20130405
  Receipt Date: 20130410
  Transmission Date: 20140414
  Serious: No
  Sender: FDA-Public Use
  Company Number: US-009507513-1303USA010180

PATIENT
  Age: 52 Year
  Sex: Female

DRUGS (3)
  1. ASMANEX TWISTHALER [Suspect]
     Dosage: 1 DF(PUFF), BID, ROUTE: INHALATION
     Route: 055
     Dates: start: 201203
  2. ADVAIR [Concomitant]
  3. VENTOLIN HFA [Concomitant]

REACTIONS (3)
  - Product quality issue [Unknown]
  - Accidental exposure to product [Unknown]
  - Drug dose omission [Unknown]
